FAERS Safety Report 24367470 (Version 1)
Quarter: 2024Q3

REPORT INFORMATION
  Report Type: Spontaneous
  Country: TW (occurrence: TW)
  Receive Date: 20240926
  Receipt Date: 20240926
  Transmission Date: 20241016
  Serious: Yes (Death, Hospitalization, Other)
  Sender: AMGEN
  Company Number: TW-PFIZER INC-PV202400120717

PATIENT
  Sex: Female

DRUGS (1)
  1. ENBREL [Suspect]
     Active Substance: ETANERCEPT
     Indication: Rheumatoid arthritis
     Dosage: 25 MG, QW
     Route: 058
     Dates: start: 20040505, end: 20240815

REACTIONS (6)
  - Cardiac arrest [Fatal]
  - Respiratory arrest [Fatal]
  - Cerebral infarction [Fatal]
  - Sepsis [Fatal]
  - Mutism [Unknown]
  - Off label use [Unknown]

NARRATIVE: CASE EVENT DATE: 20040505
